FAERS Safety Report 8825666 (Version 1)
Quarter: 2012Q4

REPORT INFORMATION
  Report Type: 
  Country: US (occurrence: US)
  Receive Date: 20121004
  Receipt Date: 20121004
  Transmission Date: 20130627
  Serious: No
  Sender: FDA-Public Use
  Company Number: US-009507513-1208USA012133

PATIENT
  Age: 56 Year
  Sex: Female

DRUGS (1)
  1. SINGULAIR [Suspect]
     Dosage: 10 mg, qd
     Route: 048
     Dates: end: 20120822

REACTIONS (1)
  - Migraine [Recovering/Resolving]
